FAERS Safety Report 7609775-1 (Version None)
Quarter: 2011Q3

REPORT INFORMATION
  Report Type: 
  Country: None (occurrence: None)
  Receive Date: 20110714
  Receipt Date: 20110701
  Transmission Date: 20111222
  Serious: Yes (Hospitalization, Other)
  Sender: FDA-Public Use
  Company Number: DE-ELI_LILLY_AND_COMPANY-DE201103006887

PATIENT
  Sex: Female

DRUGS (5)
  1. TILIDIN [Concomitant]
     Dosage: UNK UNK, UNKNOWN
     Route: 065
  2. LEVOTHYROXINE SODIUM [Concomitant]
     Dosage: UNK UNK, UNKNOWN
     Route: 065
  3. PANTOPRAZOLE [Concomitant]
     Dosage: UNK, UNKNOWN
     Route: 065
  4. CALCIMAGON [Concomitant]
     Dosage: UNK, UNKNOWN
     Route: 065
  5. FORTEO [Suspect]
     Indication: OSTEOPOROSIS
     Dosage: UNK, QD
     Route: 058
     Dates: start: 20101004

REACTIONS (6)
  - SYNCOPE [None]
  - DIZZINESS [None]
  - HIP ARTHROPLASTY [None]
  - BURSITIS [None]
  - FALL [None]
  - NEOPLASM [None]
